FAERS Safety Report 12980319 (Version 1)
Quarter: 2016Q4

REPORT INFORMATION
  Report Type: Spontaneous
  Country: JP (occurrence: JP)
  Receive Date: 20161128
  Receipt Date: 20161128
  Transmission Date: 20170207
  Serious: Yes (Other)
  Sender: FDA-Public Use
  Company Number: JP-ABBVIE-16P-087-1792930-00

PATIENT
  Age: 31 Year
  Sex: Male
  Weight: 76 kg

DRUGS (7)
  1. SEVOFRANE [Suspect]
     Active Substance: SEVOFLURANE
     Indication: MAINTENANCE OF ANAESTHESIA
  2. PROPOFOL. [Concomitant]
     Active Substance: PROPOFOL
     Indication: INDUCTION OF ANAESTHESIA
     Route: 042
     Dates: start: 20120320, end: 20120320
  3. ESLAX [Concomitant]
     Active Substance: ROCURONIUM BROMIDE
     Indication: HYPOTONIA
     Route: 042
     Dates: start: 20120320, end: 20120320
  4. NITROUS OXIDE. [Concomitant]
     Active Substance: NITROUS OXIDE
     Indication: SEDATION
     Dosage: 4 L/MIN
     Route: 042
     Dates: start: 20120320, end: 20120320
  5. SOSEGON [Concomitant]
     Active Substance: PENTAZOCINE
     Indication: ANALGESIC THERAPY
     Route: 042
     Dates: start: 20120320, end: 20120320
  6. SEVOFRANE [Suspect]
     Active Substance: SEVOFLURANE
     Indication: INDUCTION OF ANAESTHESIA
     Dosage: 1 TO 6%/1 IN 1 DAY
     Route: 055
     Dates: start: 20120320, end: 20120320
  7. CERCINE [Concomitant]
     Active Substance: DIAZEPAM
     Indication: SEDATION
     Route: 042
     Dates: start: 20120320, end: 20120320

REACTIONS (4)
  - Body temperature increased [Recovered/Resolved]
  - Tachycardia [Recovered/Resolved]
  - Carbon dioxide increased [Recovered/Resolved]
  - Arrhythmia [Recovered/Resolved]

NARRATIVE: CASE EVENT DATE: 20120320
